FAERS Safety Report 7937151-0 (Version None)
Quarter: 2011Q4

REPORT INFORMATION
  Report Type: 
  Country: None (occurrence: None)
  Receive Date: 20111123
  Receipt Date: 20111114
  Transmission Date: 20120403
  Serious: Yes (Other)
  Sender: FDA-Public Use
  Company Number: US-BAYER-201042014NA

PATIENT
  Age: 25 Year
  Sex: Female
  Weight: 126.98 kg

DRUGS (16)
  1. LEVOTHYROXINE SODIUM [Concomitant]
     Indication: HYPOTHYROIDISM
     Dosage: UNK
     Dates: start: 20080101
  2. SYNTHROID [Concomitant]
     Indication: HYPOTHYROIDISM
     Dosage: 100 UNK, UNK
     Route: 048
  3. YASMIN [Suspect]
     Indication: MENSTRUATION IRREGULAR
  4. DROSPIRENONE AND ETHINYL ESTRADIOL [Suspect]
     Indication: MENSTRUATION IRREGULAR
  5. ALDACTONE [Concomitant]
     Indication: POLYCYSTIC OVARIES
     Dosage: 60 MG, UNK
     Route: 048
  6. YASMIN [Suspect]
     Indication: ACNE
  7. RISPERDAL [Concomitant]
     Indication: BIPOLAR DISORDER
     Dosage: 2 MG, QD
     Route: 048
  8. METFORMIN [Concomitant]
     Indication: DIABETES MELLITUS
     Dosage: 60 MG, BID
  9. ALDACTONE [Concomitant]
     Indication: ACNE
  10. DROSPIRENONE AND ETHINYL ESTRADIOL [Suspect]
     Indication: ORAL CONTRACEPTION
     Dosage: UNK UNK, UNK
     Route: 048
     Dates: start: 20080101, end: 20090101
  11. DROSPIRENONE AND ETHINYL ESTRADIOL [Suspect]
     Indication: ACNE
  12. DEPAKOTE [Concomitant]
     Indication: BIPOLAR DISORDER
     Dosage: 2000 MG, UNK
  13. CYMBALTA [Concomitant]
     Indication: DEPRESSION
     Dosage: 50 MG, UNK
     Route: 048
  14. AMBIEN [Concomitant]
     Indication: SLEEP DISORDER
     Dosage: 5 MG, PRN
     Route: 048
  15. YASMIN [Suspect]
     Indication: CONTRACEPTION
     Dosage: UNK UNK, UNK
     Route: 048
     Dates: start: 20080101, end: 20090101
  16. MINOCYCLINE HCL [Concomitant]
     Indication: ACNE
     Dosage: 50 MG, BID
     Route: 048

REACTIONS (5)
  - GALLBLADDER DISORDER [None]
  - PAIN [None]
  - ABDOMINAL PAIN [None]
  - CHOLECYSTITIS CHRONIC [None]
  - DYSPEPSIA [None]
